FAERS Safety Report 19733452 (Version 1)
Quarter: 2021Q3

REPORT INFORMATION
  Report Type: Spontaneous
  Country: US (occurrence: US)
  Receive Date: 20210823
  Receipt Date: 20210823
  Transmission Date: 20211014
  Serious: No
  Sender: FDA-Public Use
  Company Number: US-CIPLA LTD.-2021US03517

PATIENT

DRUGS (5)
  1. PEPCID [ALUMINIUM HYDROXIDE;MAGNESIUM TRISILICATE;SODIUM ALGINATE] [Concomitant]
     Indication: PRODUCT USED FOR UNKNOWN INDICATION
     Dosage: 40 MILLIGRAM, BID
     Route: 065
     Dates: start: 2016
  2. DICLOFENAC [Suspect]
     Active Substance: DICLOFENAC
     Indication: OSTEOARTHRITIS
     Dosage: UNK, INTERMITTENTLY ONCE OR TWICE A DAY, SOMETIMES THRICE A DAY IF REQUIRED
     Route: 061
  3. BACLOFEN. [Concomitant]
     Active Substance: BACLOFEN
     Indication: SPINAL DISORDER
     Dosage: 580 MCG PER DAY
     Route: 065
     Dates: start: 2004
  4. DICLOFENAC [Suspect]
     Active Substance: DICLOFENAC
     Dosage: UNK, INTERMITTENTLY ONCE OR TWICE A DAY, SOMETIMES THRICE A DAY IF REQUIRED
     Route: 061
     Dates: start: 202104
  5. LEVOTHYROXINE. [Concomitant]
     Active Substance: LEVOTHYROXINE
     Indication: PRODUCT USED FOR UNKNOWN INDICATION
     Dosage: 200 MCG PER DAY
     Route: 065
     Dates: start: 2016

REACTIONS (4)
  - Wrong technique in product usage process [Not Recovered/Not Resolved]
  - Product quality issue [Unknown]
  - Circumstance or information capable of leading to medication error [Unknown]
  - Rash [Not Recovered/Not Resolved]

NARRATIVE: CASE EVENT DATE: 202104
